FAERS Safety Report 24913446 (Version 1)
Quarter: 2025Q1

REPORT INFORMATION
  Report Type: Spontaneous
  Country: JP (occurrence: JP)
  Receive Date: 20250201
  Receipt Date: 20250201
  Transmission Date: 20250409
  Serious: Yes (Death, Hospitalization, Other)
  Sender: UNITED THERAPEUTICS
  Company Number: JP-UNITED THERAPEUTICS-UNT-2025-003077

PATIENT
  Age: 46 Year
  Sex: Female

DRUGS (4)
  1. REMODULIN [Suspect]
     Active Substance: TREPROSTINIL
     Indication: Heritable pulmonary arterial hypertension
  2. MACITENTAN [Concomitant]
     Active Substance: MACITENTAN
     Indication: Heritable pulmonary arterial hypertension
     Dosage: 10 MG, QD
  3. TADALAFIL [Concomitant]
     Active Substance: TADALAFIL
     Indication: Heritable pulmonary arterial hypertension
     Dosage: 40 MG, QD
  4. RABEPRAZOLE [Concomitant]
     Active Substance: RABEPRAZOLE
     Indication: Product used for unknown indication

REACTIONS (9)
  - Urosepsis [Fatal]
  - Gastric dysplasia [Unknown]
  - Renal failure [Unknown]
  - Gastric haemorrhage [Unknown]
  - Blood loss anaemia [Not Recovered/Not Resolved]
  - Syncope [Unknown]
  - Gastric mucosal hypertrophy [Unknown]
  - Pulmonary congestion [Unknown]
  - Procedural failure [Unknown]
